FAERS Safety Report 6354032-7 (Version None)
Quarter: 2009Q3

REPORT INFORMATION
  Report Type: 
  Country: None (occurrence: None)
  Receive Date: 20090909
  Receipt Date: 20090824
  Transmission Date: 20100115
  Serious: Yes (Hospitalization, Other)
  Sender: FDA-Public Use
  Company Number: 2005AL000020

PATIENT
  Age: 59 Year
  Sex: Male
  Weight: 87.0906 kg

DRUGS (16)
  1. METOCLOPRAMIDE [Suspect]
     Indication: GASTROOESOPHAGEAL REFLUX DISEASE
     Dosage: 10 MG;QID
     Dates: start: 20000808, end: 20030718
  2. METOCLOPRAMIDE [Suspect]
     Indication: GASTROOESOPHAGEAL REFLUX DISEASE
     Dates: start: 20000808, end: 20030718
  3. REGLAN [Suspect]
     Indication: GASTROOESOPHAGEAL REFLUX DISEASE
     Dates: start: 20000808, end: 20030718
  4. PREVACID [Concomitant]
  5. COMBIVENT [Concomitant]
  6. CELEXA [Concomitant]
  7. CARAFATE [Concomitant]
  8. LORAZEPAM [Concomitant]
  9. DARVOCET-N 100 [Concomitant]
  10. PRILOSEC [Concomitant]
  11. TORADOL [Concomitant]
  12. MORPHINE [Concomitant]
  13. NORFLEX [Concomitant]
  14. MEDROL [Concomitant]
  15. PERCOCET [Concomitant]
  16. VALIUM [Concomitant]

REACTIONS (8)
  - ANHEDONIA [None]
  - DYSTONIA [None]
  - ECONOMIC PROBLEM [None]
  - EMOTIONAL DISORDER [None]
  - ILL-DEFINED DISORDER [None]
  - INJURY [None]
  - PAIN [None]
  - TARDIVE DYSKINESIA [None]
